FAERS Safety Report 16791930 (Version 2)
Quarter: 2019Q4

REPORT INFORMATION
  Report Type: Report from Study
  Country: US (occurrence: US)
  Receive Date: 20190910
  Receipt Date: 20191014
  Transmission Date: 20200122
  Serious: Yes (Death, Life-Threatening, Hospitalization, Disabling, Other)
  Sender: FDA-Public Use
  Company Number: US-PFIZER INC-2019179512

PATIENT
  Age: 21 Year
  Sex: Female
  Weight: 71.2 kg

DRUGS (27)
  1. CYTARABINE. [Suspect]
     Active Substance: CYTARABINE
     Indication: ACUTE LYMPHOCYTIC LEUKAEMIA
     Dosage: 1000 MG/M2,  2 IN 1 D
     Route: 042
     Dates: start: 20190225, end: 20190228
  2. VENETOCLAX. [Suspect]
     Active Substance: VENETOCLAX
     Indication: ACUTE LYMPHOCYTIC LEUKAEMIA
     Dosage: 200 MG, 1 IN 1 D
     Route: 048
     Dates: start: 20190222, end: 20190222
  3. OMEPRAZOLE. [Concomitant]
     Active Substance: OMEPRAZOLE
     Indication: PROPHYLAXIS OF NAUSEA AND VOMITING
     Dosage: 40 MG, 1 IN 1 D
     Route: 048
     Dates: start: 20190222
  4. DIPHENHYDRAMINE. [Concomitant]
     Active Substance: DIPHENHYDRAMINE
     Indication: PAIN
     Dosage: 50 MG, 1 IN 1 EVERY OTHER DAY
     Route: 048
     Dates: start: 20190221, end: 20190223
  5. PENTAMIDINE [Concomitant]
     Active Substance: PENTAMIDINE
     Indication: INFECTION PROPHYLAXIS
     Dosage: UNK UNK, DAILY DOSE (ONCE)
     Route: 042
     Dates: start: 20190306
  6. CYTARABINE. [Suspect]
     Active Substance: CYTARABINE
     Dosage: 1000 MG/M2, 2 IN 1 D
     Route: 042
     Dates: start: 20190304, end: 20190307
  7. CYTARABINE. [Suspect]
     Active Substance: CYTARABINE
     Dosage: 40 MG, ONCE
     Route: 037
     Dates: start: 20190315, end: 20190315
  8. ACETAMINOPHEN. [Concomitant]
     Active Substance: ACETAMINOPHEN
     Indication: PAIN
     Dosage: 650 MG, AS REQUIRED
     Route: 048
     Dates: start: 20190225
  9. NYSTATIN. [Concomitant]
     Active Substance: NYSTATIN
     Indication: INFECTION PROPHYLAXIS
     Dosage: 20 ML (5 ML, 4 IN 1 D)
     Route: 048
     Dates: start: 20190303
  10. ONDANSETRON [Concomitant]
     Active Substance: ONDANSETRON
     Indication: NAUSEA
     Dosage: 24 MG (8 MG, 3 IN 1 D)
     Route: 048
     Dates: start: 20190221, end: 20190225
  11. MICAFUNGIN. [Concomitant]
     Active Substance: MICAFUNGIN SODIUM
     Indication: CANDIDA INFECTION
     Dosage: 150 MG, 1 IN 1 D
     Route: 048
     Dates: start: 20190304, end: 20190306
  12. MELATONIN [Concomitant]
     Active Substance: MELATONIN
     Indication: SLEEP DISORDER
     Dosage: 5 MG, 1 IN 1 D
     Route: 048
     Dates: start: 20190221
  13. ESCITALOPRAM [Concomitant]
     Active Substance: ESCITALOPRAM OXALATE
     Indication: DEPRESSION
     Dosage: 5 MG, 1 IN 1 D
     Route: 048
     Dates: start: 20190222
  14. PHENOL. [Concomitant]
     Active Substance: PHENOL
     Indication: OROPHARYNGEAL PAIN
     Dosage: DAILY DOSE 2 SPRAYS (ONCE)
     Route: 061
     Dates: start: 20190307
  15. VENETOCLAX. [Suspect]
     Active Substance: VENETOCLAX
     Dosage: 400 MG, 1 IN 1 D
     Route: 048
     Dates: start: 20190223, end: 20190223
  16. GADOBUTROL. [Concomitant]
     Active Substance: GADOBUTROL
     Indication: MAGNETIC RESONANCE IMAGING
     Dosage: 8.01 MILLIMOL, ONCE
     Route: 042
     Dates: start: 20190226, end: 20190226
  17. IOVERSOL [Concomitant]
     Active Substance: IOVERSOL
     Indication: MAGNETIC RESONANCE IMAGING
     Dosage: 95 ML, ONCE
     Route: 042
     Dates: start: 20190225, end: 20190225
  18. LORAZEPAM. [Concomitant]
     Active Substance: LORAZEPAM
     Indication: PROPHYLAXIS
     Dosage: 2 MG (1 MG, 2 IN 1 D)
     Route: 048
     Dates: start: 20190222, end: 20190225
  19. LORAZEPAM. [Concomitant]
     Active Substance: LORAZEPAM
     Dosage: 1 MG, ONCE
     Route: 048
     Dates: start: 20190227, end: 20190227
  20. ONDANSETRON [Concomitant]
     Active Substance: ONDANSETRON
     Dosage: 8 MG, 1 IN 8 HR
     Route: 042
     Dates: start: 20190225, end: 20190314
  21. VENETOCLAX. [Suspect]
     Active Substance: VENETOCLAX
     Dosage: 800 MG, 1 IN 1 D
     Route: 048
     Dates: start: 20190224, end: 20190313
  22. DIPHENHYDRAMINE. [Concomitant]
     Active Substance: DIPHENHYDRAMINE
     Dosage: 50 MG, AS REQUIRED
     Route: 042
     Dates: start: 20190225
  23. LORAZEPAM. [Concomitant]
     Active Substance: LORAZEPAM
     Dosage: 1 MG, 1 IN 8 HR
     Route: 042
     Dates: start: 20190225
  24. LORAZEPAM. [Concomitant]
     Active Substance: LORAZEPAM
     Dosage: 1 MG, ONCE
     Route: 042
     Dates: start: 20190226, end: 20190226
  25. URSODIOL. [Concomitant]
     Active Substance: URSODIOL
     Indication: BLOOD CHOLESTEROL
     Dosage: 600 MG (300 MG, 2 IN 1 D)
     Route: 048
     Dates: start: 20190221
  26. MAGNESIUM OXIDE. [Concomitant]
     Active Substance: MAGNESIUM OXIDE
     Indication: SUPPLEMENTATION THERAPY
     Dosage: 280 MG, 3 IN 1 D
     Route: 048
     Dates: start: 20190221
  27. HYDROMORPHONE [Concomitant]
     Active Substance: HYDROMORPHONE
     Indication: PAIN
     Dosage: 0.6 MG, Q2HR PRN
     Route: 042
     Dates: start: 20190225

REACTIONS (15)
  - Aspartate aminotransferase increased [Recovered/Resolved]
  - Abdominal pain [Not Recovered/Not Resolved]
  - Febrile neutropenia [Not Recovered/Not Resolved]
  - Ascites [Not Recovered/Not Resolved]
  - Hepatobiliary disease [Not Recovered/Not Resolved]
  - Acute kidney injury [Not Recovered/Not Resolved]
  - Hypophosphataemia [Recovered/Resolved]
  - Sinus tachycardia [Not Recovered/Not Resolved]
  - Venoocclusive liver disease [Not Recovered/Not Resolved]
  - International normalised ratio increased [Not Recovered/Not Resolved]
  - Serratia sepsis [Not Recovered/Not Resolved]
  - Neoplasm progression [Fatal]
  - Blood creatinine increased [Recovered/Resolved]
  - Hyperbilirubinaemia [Not Recovered/Not Resolved]
  - Activated partial thromboplastin time prolonged [Not Recovered/Not Resolved]

NARRATIVE: CASE EVENT DATE: 20190314
